FAERS Safety Report 9201858 (Version 3)
Quarter: 2014Q2

REPORT INFORMATION
  Report Type: Report from Study
  Country: BE (occurrence: BE)
  Receive Date: 20130401
  Receipt Date: 20140407
  Transmission Date: 20141212
  Serious: Yes (Life-Threatening, Hospitalization)
  Sender: FDA-Public Use
  Company Number: BE-ROCHE-1200004

PATIENT
  Age: 72 Year
  Sex: Female
  Weight: 60 kg

DRUGS (7)
  1. BEVACIZUMAB [Suspect]
     Indication: COLORECTAL CANCER METASTATIC
     Route: 042
     Dates: start: 20130102, end: 20130129
  2. BEVACIZUMAB [Suspect]
     Indication: RECTAL CANCER
  3. XELODA [Suspect]
     Indication: COLORECTAL CANCER METASTATIC
     Route: 042
     Dates: start: 20130102, end: 20130129
  4. OXALIPLATIN [Suspect]
     Indication: COLORECTAL CANCER METASTATIC
     Route: 042
     Dates: start: 20130102
  5. OXALIPLATIN [Suspect]
     Dosage: EVERY 2 WEEKS
     Route: 042
     Dates: start: 20130305, end: 20130417
  6. 5-FU [Suspect]
     Indication: COLORECTAL CANCER METASTATIC
     Dosage: EVERY 2 WEEKS
     Route: 042
     Dates: start: 20130305, end: 20130417
  7. IMODIUM [Concomitant]
     Indication: DIARRHOEA
     Route: 048
     Dates: start: 20130129

REACTIONS (4)
  - Metastases to central nervous system [Not Recovered/Not Resolved]
  - Pneumoperitoneum [Recovered/Resolved]
  - Lung lobectomy [Recovered/Resolved]
  - Tumour excision [Recovered/Resolved]
